FAERS Safety Report 8484314-4 (Version None)
Quarter: 2012Q3

REPORT INFORMATION
  Report Type: 
  Country: None (occurrence: None)
  Receive Date: 20120703
  Receipt Date: 20120625
  Transmission Date: 20120928
  Serious: Yes (Hospitalization)
  Sender: FDA-Public Use
  Company Number: PHHY2012AU055658

PATIENT
  Sex: Male

DRUGS (1)
  1. EXJADE [Suspect]
     Indication: IRON OVERLOAD
     Dosage: 1500 MG
     Route: 048
     Dates: start: 20120417

REACTIONS (8)
  - PULSE PRESSURE DECREASED [None]
  - ASTHENIA [None]
  - HEART RATE DECREASED [None]
  - AGEUSIA [None]
  - BALANCE DISORDER [None]
  - LOSS OF CONSCIOUSNESS [None]
  - HYPERSOMNIA [None]
  - DECREASED APPETITE [None]
